FAERS Safety Report 24016741 (Version 1)
Quarter: 2024Q2

REPORT INFORMATION
  Report Type: Report from Study
  Country: US (occurrence: US)
  Receive Date: 20240626
  Receipt Date: 20240626
  Transmission Date: 20240716
  Serious: No
  Sender: FDA-Public Use
  Company Number: US-SANDOZ-SDZ2024US060637

PATIENT
  Age: 5 Year
  Sex: Male

DRUGS (2)
  1. OMNITROPE [Suspect]
     Active Substance: SOMATROPIN
     Indication: Hypopituitarism
     Dosage: 0.4 MG, QD (5 MG / 1.5 ML SOLUTION FOR INJECTION)
     Route: 058
     Dates: start: 20240611
  2. OMNITROPE [Suspect]
     Active Substance: SOMATROPIN
     Indication: Hypopituitarism
     Dosage: 0.4 MG, QD (5 MG / 1.5 ML SOLUTION FOR INJECTION)
     Route: 058
     Dates: start: 20240611

REACTIONS (3)
  - Injection site bruising [Unknown]
  - Needle issue [Unknown]
  - Wrong technique in device usage process [Unknown]

NARRATIVE: CASE EVENT DATE: 20240611
